FAERS Safety Report 7623023-8 (Version None)
Quarter: 2011Q3

REPORT INFORMATION
  Report Type: 
  Country: None (occurrence: None)
  Receive Date: 20110720
  Receipt Date: 20110419
  Transmission Date: 20111222
  Serious: Yes (Hospitalization, Other)
  Sender: FDA-Public Use
  Company Number: US-UCBSA-026714

PATIENT
  Sex: Female
  Weight: 73.93 kg

DRUGS (12)
  1. ACETAMINOPHEN W/ CODEINE [Concomitant]
  2. POLYETHYLENE GLYCOL [Concomitant]
  3. CIMZIA [Suspect]
     Indication: CROHN'S DISEASE
     Route: 058
     Dates: start: 20101123
  4. PREDNISONE [Concomitant]
     Dates: start: 20050601, end: 20050101
  5. ONDANSETRON [Concomitant]
  6. BARIUM SULFATE [Concomitant]
  7. BISACODYL [Concomitant]
  8. DEXTROSE-SODIUM CHORIDE [Concomitant]
  9. DIPHENHYDRAMINE HCL [Concomitant]
  10. VITAMIN AND MINERAL PRENATAL SUPPLEMENT W/ FOLIC ACID CAP [Concomitant]
  11. PREDNISONE [Concomitant]
     Dates: start: 20100501
  12. MAGNESIUM [Concomitant]

REACTIONS (2)
  - MATERNAL EXPOSURE DURING PREGNANCY [None]
  - CAESAREAN SECTION [None]
